FAERS Safety Report 14699563 (Version 1)
Quarter: 2018Q1

REPORT INFORMATION
  Report Type: Spontaneous
  Country: None (occurrence: US)
  Receive Date: 20180330
  Receipt Date: 20180330
  Transmission Date: 20180509
  Serious: Yes (Other)
  Sender: FDA-Public Use
  Company Number: US-VALIDUS PHARMACEUTICALS LLC-US-2018VAL000543

PATIENT
  Age: 61 Year
  Sex: Male

DRUGS (1)
  1. LOPRESSOR [Suspect]
     Active Substance: METOPROLOL TARTRATE
     Indication: PRODUCT USED FOR UNKNOWN INDICATION
     Dosage: UNK
     Route: 065

REACTIONS (10)
  - Kidney infection [Unknown]
  - Asthenia [Unknown]
  - Condition aggravated [Unknown]
  - Limb injury [Unknown]
  - Hypotension [Unknown]
  - Fall [Unknown]
  - Altered state of consciousness [Unknown]
  - Immobile [Unknown]
  - Renal failure [Unknown]
  - Poor peripheral circulation [Unknown]
